FAERS Safety Report 12301824 (Version 1)
Quarter: 2016Q2

REPORT INFORMATION
  Report Type: Spontaneous
  Country: RU (occurrence: RU)
  Receive Date: 20160425
  Receipt Date: 20160425
  Transmission Date: 20160815
  Serious: Yes (Other)
  Sender: FDA-Public Use
  Company Number: RU-GLAXOSMITHKLINE-RU2016GSK037427

PATIENT
  Sex: Female

DRUGS (9)
  1. ZIDOVUDINE. [Suspect]
     Active Substance: ZIDOVUDINE
     Indication: HIV INFECTION
     Dosage: UNK
     Dates: start: 20160309
  2. ZODAC [Suspect]
     Active Substance: CETIRIZINE HYDROCHLORIDE
     Indication: RASH
     Dosage: UNK
     Dates: start: 20160311
  3. ZIDOVUDINE. [Suspect]
     Active Substance: ZIDOVUDINE
     Dosage: UNK
     Dates: start: 20160410
  4. LAMIVUDINE. [Suspect]
     Active Substance: LAMIVUDINE
     Indication: HIV INFECTION
     Dosage: UNK
     Route: 065
  5. ISENTRESS [Suspect]
     Active Substance: RALTEGRAVIR POTASSIUM
     Indication: HIV INFECTION
     Dosage: UNK
     Route: 065
  6. ABACAVIR. [Suspect]
     Active Substance: ABACAVIR
     Indication: HIV INFECTION
     Dosage: UNK
     Route: 065
  7. INTELENCE [Suspect]
     Active Substance: ETRAVIRINE
     Indication: HIV INFECTION
     Dosage: UNK
     Route: 065
     Dates: start: 20160309
  8. REGAST [Suspect]
     Active Substance: EFAVIRENZ
     Indication: HIV INFECTION
     Dosage: UNK
     Route: 065
  9. AMIVIREN [Suspect]
     Active Substance: LAMIVUDINE
     Indication: HIV INFECTION
     Dosage: UNK
     Dates: start: 20160309

REACTIONS (8)
  - Pruritus [Unknown]
  - Toxic skin eruption [Recovered/Resolved]
  - Hypersensitivity [Recovered/Resolved]
  - Headache [Recovering/Resolving]
  - Nausea [Not Recovered/Not Resolved]
  - Rash [Unknown]
  - Somnolence [Recovered/Resolved]
  - Haemoglobin decreased [None]

NARRATIVE: CASE EVENT DATE: 20160311
